FAERS Safety Report 22368868 (Version 1)
Quarter: 2023Q2

REPORT INFORMATION
  Report Type: Spontaneous
  Country: None (occurrence: IE)
  Receive Date: 20230525
  Receipt Date: 20230525
  Transmission Date: 20230722
  Serious: Yes (Other)
  Sender: FDA-Public Use
  Company Number: IE-B.Braun Medical Inc.-2142010

PATIENT
  Age: 51 Year
  Sex: Female

DRUGS (2)
  1. SODIUM CHLORIDE [Suspect]
     Active Substance: SODIUM CHLORIDE
  2. COMIRNATY [Suspect]
     Active Substance: TOZINAMERAN

REACTIONS (2)
  - Paraesthesia [Recovered/Resolved]
  - Dysgeusia [Recovered/Resolved]
